FAERS Safety Report 6782152-1 (Version None)
Quarter: 2010Q2

REPORT INFORMATION
  Report Type: 
  Country: None (occurrence: None)
  Receive Date: 20100621
  Receipt Date: 20100608
  Transmission Date: 20101027
  Serious: Yes (Other)
  Sender: FDA-Public Use
  Company Number: PHHY2010IT37829

PATIENT
  Sex: Male

DRUGS (7)
  1. ZOMETA [Suspect]
     Indication: PROSTATE CANCER
     Dosage: ONE POSOLOGICAL UNIT, CYCLIC
     Route: 042
     Dates: start: 20071112, end: 20080905
  2. ZOMETA [Suspect]
     Dosage: ONE VIAL EVERY TWO MONTHS
     Dates: start: 20090516
  3. CASODEX [Concomitant]
  4. ZOLADEX [Concomitant]
  5. PREFOLIC [Concomitant]
     Indication: ANAEMIA
  6. DELTACORTENE [Concomitant]
  7. SOLDESAM [Concomitant]

REACTIONS (3)
  - ORAL CAVITY FISTULA [None]
  - SEQUESTRECTOMY [None]
  - TOOTH EXTRACTION [None]
